FAERS Safety Report 7534826-2 (Version None)
Quarter: 2011Q2

REPORT INFORMATION
  Report Type: 
  Country: None (occurrence: None)
  Receive Date: 20110609
  Receipt Date: 20080915
  Transmission Date: 20111010
  Serious: Yes (Life-Threatening, Hospitalization, Other)
  Sender: FDA-Public Use
  Company Number: PHHY2008CA20054

PATIENT
  Sex: Male

DRUGS (5)
  1. LAMICTAL [Concomitant]
     Dosage: 100 MG, BID
  2. ATWAN [Concomitant]
     Dosage: 1 MG, UNK
     Route: 048
  3. CLOZAPINE [Suspect]
     Indication: SCHIZOPHRENIA, PARANOID TYPE
     Dosage: 350 MG, BID
     Route: 048
     Dates: start: 20021216
  4. CRESTOR [Concomitant]
     Dosage: 10 MG, UNK
     Route: 048
  5. SEROQUEL [Concomitant]
     Dosage: 400 MG, UNK
     Route: 048

REACTIONS (1)
  - LUNG SQUAMOUS CELL CARCINOMA STAGE UNSPECIFIED [None]
